FAERS Safety Report 6060564-1 (Version None)
Quarter: 2009Q1

REPORT INFORMATION
  Report Type: 
  Country: None (occurrence: None)
  Receive Date: 20090130
  Receipt Date: 20090130
  Transmission Date: 20090719
  Serious: No
  Sender: FDA-Public Use
  Company Number: None

PATIENT
  Age: 37 Year
  Sex: Female

DRUGS (5)
  1. BOTULISM ANTITOXIN ABE [Suspect]
     Indication: BOTULISM
     Dosage: 7500 IU TYPE A, 5500 IU TYPE B ONCE IV DRIP
     Route: 041
     Dates: start: 20090122, end: 20090122
  2. PENICILLIN G [Concomitant]
  3. CITALOPRAM HYDROBROMIDE [Concomitant]
  4. LEVOTHYROXINE [Concomitant]
  5. ZYRTEC [Concomitant]

REACTIONS (5)
  - FACE OEDEMA [None]
  - PROTRUSION TONGUE [None]
  - SWELLING FACE [None]
  - SWOLLEN TONGUE [None]
  - TONGUE OEDEMA [None]
